FAERS Safety Report 24742216 (Version 1)
Quarter: 2024Q4

REPORT INFORMATION
  Report Type: Spontaneous
  Country: ES (occurrence: ES)
  Receive Date: 20241217
  Receipt Date: 20241217
  Transmission Date: 20250114
  Serious: Yes (Other)
  Sender: MERCK
  Company Number: ES-009507513-2412ESP005363

PATIENT
  Age: 62 Year
  Sex: Male

DRUGS (2)
  1. PEMBROLIZUMAB [Suspect]
     Active Substance: PEMBROLIZUMAB
     Indication: Lung adenocarcinoma stage IV
     Dosage: UNK
  2. TUSAMITAMAB RAVTANSINE [Suspect]
     Active Substance: TUSAMITAMAB RAVTANSINE
     Indication: Lung adenocarcinoma stage IV
     Dosage: UNK

REACTIONS (2)
  - Myelin oligodendrocyte glycoprotein antibody-associated disease [Recovering/Resolving]
  - Product use issue [Unknown]
